FAERS Safety Report 4807704-7 (Version None)
Quarter: 2005Q4

REPORT INFORMATION
  Report Type: 
  Country: None (occurrence: None)
  Receive Date: 20051019
  Receipt Date: 20051010
  Transmission Date: 20060501
  Serious: Yes (Other)
  Sender: FDA-Public Use
  Company Number: 2005140865

PATIENT
  Age: 55 Year
  Sex: Male

DRUGS (3)
  1. CABERGOLINE [Suspect]
     Indication: PARKINSON'S DISEASE
     Dosage: 0.5 MG (0.5 MG, QD); ORAL; 1 MG (1 MG, QD); ORAL
     Route: 048
     Dates: start: 20050901, end: 20050901
  2. CABERGOLINE [Suspect]
     Indication: PARKINSON'S DISEASE
     Dosage: 0.5 MG (0.5 MG, QD); ORAL; 1 MG (1 MG, QD); ORAL
     Route: 048
     Dates: start: 20050901
  3. MADOPAR (BENSERAZIDE HYDROCHLORIDE, LEVODOPA [Concomitant]

REACTIONS (3)
  - DIZZINESS POSTURAL [None]
  - HYPOTENSION [None]
  - MUSCULOSKELETAL STIFFNESS [None]
